FAERS Safety Report 20021933 (Version 6)
Quarter: 2022Q3

REPORT INFORMATION
  Report Type: Report from Study
  Country: US (occurrence: US)
  Receive Date: 20211102
  Receipt Date: 20220916
  Transmission Date: 20221026
  Serious: Yes (Other)
  Sender: FDA-Public Use
  Company Number: NVSC2021US249571

PATIENT
  Age: 50 Year
  Sex: Female

DRUGS (1)
  1. KESIMPTA [Suspect]
     Active Substance: OFATUMUMAB
     Indication: Multiple sclerosis
     Dosage: UNK
     Route: 058
     Dates: start: 20210730

REACTIONS (8)
  - COVID-19 pneumonia [Unknown]
  - Migraine [Unknown]
  - Nausea [Unknown]
  - Cough [Not Recovered/Not Resolved]
  - Ear pain [Recovering/Resolving]
  - Gastroenteritis viral [Recovering/Resolving]
  - Stress [Unknown]
  - Product packaging issue [Unknown]

NARRATIVE: CASE EVENT DATE: 20211027
